FAERS Safety Report 4350375-7 (Version None)
Quarter: 2004Q2

REPORT INFORMATION
  Report Type: 
  Country: None (occurrence: None)
  Receive Date: 20040430
  Receipt Date: 20031024
  Transmission Date: 20050107
  Serious: No
  Sender: FDA-Public Use
  Company Number: US-BRISTOL-MYERS SQUIBB COMPANY-12418612

PATIENT
  Age: 93 Year
  Sex: Female

DRUGS (1)
  1. AMMONIUM LACTATE [Suspect]
     Route: 061

REACTIONS (2)
  - BURNING SENSATION [None]
  - PRURITUS [None]
